FAERS Safety Report 21575509 (Version 3)
Quarter: 2023Q1

REPORT INFORMATION
  Report Type: Other
  Country: US (occurrence: None)
  Receive Date: 20221110
  Receipt Date: 20230223
  Transmission Date: 20230418
  Serious: Yes (Hospitalization)
  Sender: FDA-Public Use
  Company Number: US-ROCHE-3215677

PATIENT
  Age: 79 Year
  Sex: Male
  Weight: 74.910 kg

DRUGS (8)
  1. ACTEMRA [Suspect]
     Active Substance: TOCILIZUMAB
     Indication: Rheumatoid arthritis
     Dosage: DATE OF TREATMENT: 22/APR/2022, 23/MAY/2022,20/JUN/2022,18/JUL/2022
     Route: 042
     Dates: start: 20201021
  2. FOLIC ACID [Concomitant]
     Active Substance: FOLIC ACID
  3. METHOTREXATE [Concomitant]
     Active Substance: METHOTREXATE
  4. VITAMIN B11 [Concomitant]
  5. DIGOXIN [Concomitant]
     Active Substance: DIGOXIN
  6. APIXABAN [Concomitant]
     Active Substance: APIXABAN
  7. METOPROLOL SUCCINATE [Concomitant]
     Active Substance: METOPROLOL SUCCINATE
  8. PREDNISONE [Concomitant]
     Active Substance: PREDNISONE

REACTIONS (6)
  - Herpes zoster oticus [Not Recovered/Not Resolved]
  - Drooling [Unknown]
  - Urinary tract infection [Unknown]
  - Fall [Unknown]
  - Dysarthria [Unknown]
  - Salivary hypersecretion [Unknown]
